FAERS Safety Report 4602930-4 (Version None)
Quarter: 2005Q1

REPORT INFORMATION
  Report Type: 
  Country: None (occurrence: None)
  Receive Date: 20050307
  Receipt Date: 20050216
  Transmission Date: 20050727
  Serious: Yes (Life-Threatening)
  Sender: FDA-Public Use
  Company Number: 05UK 0070

PATIENT
  Age: 39 Year
  Sex: Female

DRUGS (1)
  1. GLIADEL [Suspect]
     Indication: ASTROCYTOMA
     Dosage: 8 WAFERS IMPLANTED
     Dates: start: 20041101

REACTIONS (5)
  - BRAIN OEDEMA [None]
  - GENERAL PHYSICAL HEALTH DETERIORATION [None]
  - IMPLANT SITE OEDEMA [None]
  - PUPIL FIXED [None]
  - WOUND SECRETION [None]
